FAERS Safety Report 14580624 (Version 2)
Quarter: 2018Q2

REPORT INFORMATION
  Report Type: Report from Study
  Country: None (occurrence: US)
  Receive Date: 20180228
  Receipt Date: 20180625
  Transmission Date: 20180711
  Serious: Yes (Other)
  Sender: FDA-Public Use
  Company Number: US-ABBVIE-18K-163-2257741-00

PATIENT
  Age: 58 Year
  Sex: Female

DRUGS (1)
  1. HUMIRA [Suspect]
     Active Substance: ADALIMUMAB
     Indication: RHEUMATOID ARTHRITIS
     Route: 058
     Dates: start: 2007

REACTIONS (9)
  - Asthenia [Not Recovered/Not Resolved]
  - Hypotension [Unknown]
  - Rotator cuff syndrome [Not Recovered/Not Resolved]
  - Atrial fibrillation [Recovered/Resolved]
  - Cardiomyopathy [Unknown]
  - Vasoconstriction [Not Recovered/Not Resolved]
  - Cardiac disorder [Unknown]
  - Osteoarthritis [Not Recovered/Not Resolved]
  - Muscular weakness [Not Recovered/Not Resolved]

NARRATIVE: CASE EVENT DATE: 2015
